FAERS Safety Report 20533658 (Version 2)
Quarter: 2022Q1

REPORT INFORMATION
  Report Type: Spontaneous
  Country: US (occurrence: US)
  Receive Date: 20220301
  Receipt Date: 20220307
  Transmission Date: 20220423
  Serious: No
  Sender: FDA-Public Use
  Company Number: US-PFIZER INC-202101361086

PATIENT
  Age: 55 Year
  Sex: Male

DRUGS (4)
  1. VFEND [Suspect]
     Active Substance: VORICONAZOLE
     Dosage: 400 MG, 3X/DAY (TAKE 2 TABLETS(400MG))
     Route: 048
  2. VFEND [Suspect]
     Active Substance: VORICONAZOLE
     Dosage: 50 MG, 3X/DAY (TAKE 1 TABLET(50MG) THREE TIMES)
  3. VFEND [Suspect]
     Active Substance: VORICONAZOLE
     Dosage: 450 MG, 3X/DAY
  4. OMEPRAZOLE [Concomitant]
     Active Substance: OMEPRAZOLE
     Dosage: UNK

REACTIONS (3)
  - Antibiotic level below therapeutic [Unknown]
  - Off label use [Unknown]
  - Product use issue [Unknown]
